FAERS Safety Report 24987213 (Version 1)
Quarter: 2025Q1

REPORT INFORMATION
  Report Type: Spontaneous
  Country: US (occurrence: None)
  Receive Date: 20250219
  Receipt Date: 20250219
  Transmission Date: 20250409
  Serious: Yes (Life-Threatening, Hospitalization)
  Sender: FDA-CTU
  Company Number: None

PATIENT
  Age: 75 Year
  Sex: Male
  Weight: 99.6 kg

DRUGS (1)
  1. XGEVA [Suspect]
     Active Substance: DENOSUMAB

REACTIONS (2)
  - Hypocalcaemia [None]
  - Adverse drug reaction [None]

NARRATIVE: CASE EVENT DATE: 20250216
